FAERS Safety Report 11982079 (Version 1)
Quarter: 2016Q1

REPORT INFORMATION
  Report Type: Spontaneous
  Country: US (occurrence: None)
  Receive Date: 20160129
  Receipt Date: 20160129
  Transmission Date: 20160526
  Serious: Yes (Life-Threatening, Disabling, Other)
  Sender: FDA-Public Use
  Company Number: None

PATIENT
  Age: 65 Year
  Sex: Male
  Weight: 79.38 kg

DRUGS (13)
  1. NAPROSYN [Concomitant]
     Active Substance: NAPROXEN
  2. OMEPRAZOLE. [Concomitant]
     Active Substance: OMEPRAZOLE
  3. VIRAL MEDICINE - ONE A DAY [Concomitant]
  4. STEEL CHROME HYPODERMIC NEEDLE SYRINGE [Concomitant]
     Active Substance: DEVICE
  5. NOVOCAINE [Suspect]
     Active Substance: PROCAINE
  6. ELASTIC BACK SUPPORTER [Concomitant]
  7. ORTHOPAEDIC CANE [Concomitant]
  8. NECK BRACE [Concomitant]
  9. CUSTOM MADE ORTHOPAEDIC RIGHT KNEE BRACE [Concomitant]
  10. TWO STEEL CHROME FULL LENGTH TALL CRUTCHES [Concomitant]
  11. BACK BRACE [Concomitant]
  12. CUSTOM MADE ORTHOPAEDIC-POSTUREPEDIC BED [Concomitant]
  13. SHOULDER BRACE [Concomitant]

REACTIONS (19)
  - Anal pruritus [None]
  - Skin disorder [None]
  - Eye disorder [None]
  - Penile pain [None]
  - Mastication disorder [None]
  - Bone marrow disorder [None]
  - Blood disorder [None]
  - Saliva altered [None]
  - Gastric disorder [None]
  - Oral disorder [None]
  - Rash [None]
  - Formication [None]
  - Nausea [None]
  - Infection [None]
  - Cough [None]
  - Sneezing [None]
  - Oral pain [None]
  - Oral mucosal blistering [None]
  - Hyperhidrosis [None]

NARRATIVE: CASE EVENT DATE: 20150908
